FAERS Safety Report 4880691-1 (Version None)
Quarter: 2006Q1

REPORT INFORMATION
  Report Type: 
  Country: None (occurrence: None)
  Receive Date: 20060113
  Receipt Date: 20050406
  Transmission Date: 20060701
  Serious: Yes (Hospitalization, Disabling)
  Sender: FDA-Public Use
  Company Number: US-MERCK-0504USA01067

PATIENT
  Age: 42 Year
  Sex: Male
  Weight: 91 kg

DRUGS (19)
  1. VIOXX [Suspect]
     Indication: SHOULDER PAIN
     Route: 048
     Dates: start: 20000601, end: 20040301
  2. VIOXX [Suspect]
     Indication: ARTHRALGIA
     Route: 048
     Dates: start: 20000601, end: 20040301
  3. ATACAND [Concomitant]
     Route: 065
  4. LIPITOR [Concomitant]
     Route: 065
  5. ZOCOR [Concomitant]
     Route: 065
  6. GEMFIBROZIL [Concomitant]
     Route: 065
  7. VICODIN [Concomitant]
     Route: 065
  8. TRICOR [Concomitant]
     Route: 065
  9. PREDNISONE [Concomitant]
     Route: 065
  10. CARISOPRODOL [Concomitant]
     Route: 065
  11. GLUCOPHAGE [Concomitant]
     Route: 065
  12. AVANDIA [Concomitant]
     Route: 065
  13. NIASPAN [Concomitant]
     Route: 065
  14. CIPRO [Concomitant]
     Route: 065
  15. ALTACE [Concomitant]
     Route: 065
  16. TOPROL-XL [Concomitant]
     Route: 065
  17. PLAVIX [Concomitant]
     Route: 065
  18. MINITRAN [Concomitant]
     Route: 065
  19. GUAIFENEX [Concomitant]
     Route: 065

REACTIONS (3)
  - CHEST PAIN [None]
  - CORONARY ARTERY DISEASE [None]
  - MYOCARDIAL INFARCTION [None]
